FAERS Safety Report 7653225-6 (Version None)
Quarter: 2011Q3

REPORT INFORMATION
  Report Type: 
  Country: None (occurrence: None)
  Receive Date: 20110803
  Receipt Date: 20110721
  Transmission Date: 20111222
  Serious: Yes (Other)
  Sender: FDA-Public Use
  Company Number: US-VALEANT-2011VX002213

PATIENT
  Sex: Female

DRUGS (3)
  1. DALMANE [Suspect]
     Route: 065
  2. MEDROL [Suspect]
     Route: 065
  3. LIPITOR [Suspect]
     Route: 065

REACTIONS (5)
  - DRUG DOSE OMISSION [None]
  - BLOOD PRESSURE INCREASED [None]
  - THIRST [None]
  - POLLAKIURIA [None]
  - FLUID RETENTION [None]
